FAERS Safety Report 14147466 (Version 1)
Quarter: 2017Q4

REPORT INFORMATION
  Report Type: Spontaneous
  Country: JP (occurrence: JP)
  Receive Date: 20171031
  Receipt Date: 20171031
  Transmission Date: 20180321
  Serious: Yes (Other)
  Sender: FDA-Public Use
  Company Number: JP-BAYER-2017-207699

PATIENT
  Sex: Female

DRUGS (5)
  1. TEGRETOL [Concomitant]
     Active Substance: CARBAMAZEPINE
     Indication: EPILEPSY
  2. LAMICTAL [Concomitant]
     Active Substance: LAMOTRIGINE
     Indication: EPILEPSY
  3. TOPIRAMATE. [Concomitant]
     Active Substance: TOPIRAMATE
     Indication: EPILEPSY
  4. CLARITIN [Suspect]
     Active Substance: LORATADINE
     Dosage: UNK
     Route: 048
     Dates: start: 20171010, end: 20171013
  5. MAGMITT [Concomitant]
     Active Substance: MAGNESIUM OXIDE
     Indication: CONSTIPATION

REACTIONS (13)
  - Ear pain [None]
  - Chest pain [None]
  - Eczema [None]
  - Urine odour abnormal [None]
  - Ocular discomfort [None]
  - Headache [None]
  - Chromaturia [None]
  - Nasal congestion [None]
  - Dyspnoea [None]
  - Pain [None]
  - Epilepsy [None]
  - Sputum retention [None]
  - Constipation [None]
